FAERS Safety Report 7684993-5 (Version None)
Quarter: 2011Q3

REPORT INFORMATION
  Report Type: 
  Country: None (occurrence: None)
  Receive Date: 20110816
  Receipt Date: 20110801
  Transmission Date: 20111222
  Serious: No
  Sender: FDA-Public Use
  Company Number: US-B.I. PHARMACEUTICALS,INC./RIDGEFIELD-2011-BP-18917BP

PATIENT
  Age: 62 Year
  Sex: Male

DRUGS (11)
  1. MULTI-VITAMINS [Concomitant]
     Dates: end: 20110725
  2. HYDROCHLOROTHIAZIDE [Concomitant]
     Indication: BLOOD PRESSURE
     Dosage: 25 MG
     Route: 048
  3. TRILIPECSTICS [Concomitant]
     Dosage: 125 MG
     Dates: end: 20110725
  4. FISH OIL [Concomitant]
     Dosage: 2400 MG
     Dates: end: 20110725
  5. ACTMIST [Concomitant]
     Indication: CHRONIC OBSTRUCTIVE PULMONARY DISEASE
     Dates: end: 20110725
  6. SERTRALINE HYDROCHLORIDE [Concomitant]
     Indication: GOUT
     Dosage: 100 MG
     Dates: start: 20080101
  7. SYMBICORT [Concomitant]
  8. PRADAXA [Suspect]
     Indication: THROMBOSIS PROPHYLAXIS
     Dosage: 300 MG
     Route: 048
  9. ASPIRIN [Concomitant]
     Indication: BLOOD PRESSURE
     Dosage: 81 MG
     Dates: end: 20110725
  10. ALLOPURINOL [Concomitant]
     Indication: GOUT
     Dosage: 300 MG
     Dates: start: 20080101, end: 20110725
  11. SIMVASTATIN [Concomitant]
     Indication: BLOOD PRESSURE
     Dosage: 40 MG

REACTIONS (4)
  - FEELING HOT [None]
  - PRURITUS [None]
  - RASH [None]
  - URTICARIA [None]
